FAERS Safety Report 7978146 (Version 4)
Quarter: 2013Q3

REPORT INFORMATION
  Report Type: Report from Study
  Country: JP (occurrence: JP)
  Receive Date: 20110607
  Receipt Date: 20130727
  Transmission Date: 20140515
  Serious: Yes (Hospitalization)
  Sender: FDA-Public Use
  Company Number: JP-ASTRAZENECA-2011SE33741

PATIENT
  Age: 74 Year
  Sex: Male
  Weight: 60 kg

DRUGS (11)
  1. ECARD HD [Suspect]
     Indication: HYPERTENSION
     Dosage: 1 DF DAILY
     Route: 048
     Dates: start: 20110426
  2. SYR-322 [Suspect]
     Indication: TYPE 2 DIABETES MELLITUS
     Route: 048
     Dates: start: 20101129
  3. MYSLEE [Suspect]
     Indication: INSOMNIA
     Dosage: DAILY
     Route: 048
     Dates: start: 20101010, end: 20110525
  4. INNOLET 30R [Suspect]
     Indication: TYPE 2 DIABETES MELLITUS
     Route: 058
     Dates: start: 20101203
  5. INNOLET 30R [Suspect]
     Indication: TYPE 2 DIABETES MELLITUS
     Route: 058
     Dates: end: 20110601
  6. INNOLET 30R [Suspect]
     Indication: TYPE 2 DIABETES MELLITUS
     Route: 058
     Dates: start: 20110602, end: 20110602
  7. BAYASPIRIN [Concomitant]
     Indication: THROMBOSIS PROPHYLAXIS
     Route: 048
     Dates: start: 20100929
  8. PLAVIX [Concomitant]
     Indication: THROMBOSIS PROPHYLAXIS
     Route: 048
     Dates: start: 20100930
  9. SIGMART [Concomitant]
     Indication: CARDIOVASCULAR EVENT PROPHYLAXIS
     Route: 048
     Dates: start: 20101001, end: 20110517
  10. SIGMART [Concomitant]
     Indication: CARDIOVASCULAR EVENT PROPHYLAXIS
     Route: 048
     Dates: start: 20110519
  11. FRANDOL TAPE [Concomitant]
     Indication: VASODILATATION
     Route: 062
     Dates: start: 20101001

REACTIONS (1)
  - Angina unstable [Recovered/Resolved]
